FAERS Safety Report 9824751 (Version 4)
Quarter: 2014Q2

REPORT INFORMATION
  Report Type: Report from Study
  Country: US (occurrence: US)
  Receive Date: 20140117
  Receipt Date: 20140407
  Transmission Date: 20141212
  Serious: Yes (Life-Threatening, Hospitalization)
  Sender: FDA-Public Use
  Company Number: US-ROCHE-1317161

PATIENT
  Age: 56 Year
  Sex: Female
  Weight: 69.5 kg

DRUGS (23)
  1. TOCILIZUMAB [Suspect]
     Indication: RHEUMATOID ARTHRITIS
     Dosage: LAST DOSE:21/NOV/2013
     Route: 042
     Dates: start: 20130516
  2. IBUPROFEN [Concomitant]
     Indication: RHEUMATOID ARTHRITIS
     Route: 048
     Dates: start: 2006
  3. TYLENOL WITH CODEINE [Concomitant]
     Indication: RHEUMATOID ARTHRITIS
     Route: 048
     Dates: start: 2011
  4. ASPIRIN [Concomitant]
     Indication: PROPHYLAXIS
     Route: 048
     Dates: start: 201302
  5. PERCOCET [Concomitant]
     Indication: RHEUMATOID ARTHRITIS
     Route: 048
     Dates: start: 2011
  6. ATENOLOL [Concomitant]
     Route: 048
     Dates: start: 20130507, end: 20130520
  7. ATENOLOL [Concomitant]
     Route: 048
     Dates: start: 20130520
  8. TUMS [Concomitant]
     Indication: GASTROOESOPHAGEAL REFLUX DISEASE
     Dosage: 2 TABLETS
     Route: 048
     Dates: start: 201305
  9. METHOTREXATE [Concomitant]
     Indication: RHEUMATOID ARTHRITIS
     Route: 065
     Dates: start: 20131203, end: 20131204
  10. FOLIC ACID [Concomitant]
     Route: 065
     Dates: start: 20131203, end: 20131204
  11. LISINOPRIL [Concomitant]
     Indication: HYPERTENSION
     Route: 048
     Dates: start: 201302, end: 20130506
  12. MORPHINE SULFATE [Concomitant]
     Indication: CHEST PAIN
     Route: 065
     Dates: start: 20130517, end: 20130517
  13. SENNA [Concomitant]
     Route: 065
     Dates: start: 20131210
  14. PREDNISONE [Concomitant]
     Route: 065
  15. ISOVUE-300 [Concomitant]
     Route: 065
     Dates: start: 20131205, end: 20131205
  16. DESFLURANE [Concomitant]
     Route: 065
     Dates: start: 20131205, end: 20131205
  17. ZEMURON [Concomitant]
     Route: 065
     Dates: start: 20131205, end: 20131205
  18. SUCCINYLCHOLINE [Concomitant]
     Route: 065
     Dates: start: 20131205, end: 20131205
  19. NEOSTIGMINE METHYLSULPHATE [Concomitant]
  20. MORPHINE [Concomitant]
     Route: 065
     Dates: start: 20131205, end: 20131206
  21. FENTANYL [Concomitant]
     Route: 065
     Dates: start: 20131205, end: 20131205
  22. ATOVAN [Concomitant]
     Route: 065
     Dates: start: 20131205, end: 20131206
  23. PROTONIX (OMEPRAZOLE) [Concomitant]
     Route: 065
     Dates: start: 20131205, end: 20131207

REACTIONS (2)
  - Sepsis [Recovered/Resolved]
  - Enterocolitis [Recovered/Resolved]
